FAERS Safety Report 11858707 (Version 1)
Quarter: 2015Q4

REPORT INFORMATION
  Report Type: Spontaneous
  Country: US (occurrence: US)
  Receive Date: 20151222
  Receipt Date: 20151222
  Transmission Date: 20160305
  Serious: Yes (Hospitalization)
  Sender: FDA-Public Use
  Company Number: US-AJANTA PHARMA USA INC.-1045755

PATIENT
  Age: 38 Year
  Sex: Male

DRUGS (5)
  1. LEVETIRACETAM. [Suspect]
     Active Substance: LEVETIRACETAM
     Indication: CONVULSION PROPHYLAXIS
  2. OXCARBAZEPINE. [Suspect]
     Active Substance: OXCARBAZEPINE
  3. PHENYTOIN. [Concomitant]
     Active Substance: PHENYTOIN
  4. LAMOTRIGINE. [Concomitant]
     Active Substance: LAMOTRIGINE
  5. TOPIRAMATE. [Suspect]
     Active Substance: TOPIRAMATE

REACTIONS (2)
  - Bradycardia [Recovered/Resolved]
  - Hypothermia [Recovered/Resolved]
